FAERS Safety Report 10755933 (Version 3)
Quarter: 2015Q1

REPORT INFORMATION
  Report Type: Spontaneous
  Country: DE (occurrence: DE)
  Receive Date: 20150202
  Receipt Date: 20150327
  Transmission Date: 20150721
  Serious: Yes (Death, Hospitalization)
  Sender: FDA-Public Use
  Company Number: DE-ASTRAZENECA-2015SE08602

PATIENT
  Age: 34 Year
  Sex: Female

DRUGS (44)
  1. DEMEROL [Suspect]
     Active Substance: MEPERIDINE HYDROCHLORIDE
     Dosage: DOLANTIN 25 MG, UNKNOWN
     Route: 041
     Dates: start: 19960816, end: 19960816
  2. CLAFORAN [Suspect]
     Active Substance: CEFOTAXIME SODIUM
     Dosage: UNK
     Route: 041
     Dates: start: 19960805, end: 19960809
  3. SOBELIN [Suspect]
     Active Substance: CLINDAMYCIN HYDROCHLORIDE
     Dosage: UNK
     Route: 041
     Dates: start: 19960817, end: 19960817
  4. MULTIBIONTA [Suspect]
     Active Substance: MINERALS\PROBIOTICS NOS\VITAMINS
     Route: 065
  5. METHOTREXATE [Suspect]
     Active Substance: METHOTREXATE
     Dosage: UNK
     Route: 042
     Dates: start: 19960730
  6. METHOTREXATE [Suspect]
     Active Substance: METHOTREXATE
     Dosage: UNK
     Route: 042
     Dates: start: 19960730
  7. VANCOMYCIN [Suspect]
     Active Substance: VANCOMYCIN
     Dosage: UNK
     Route: 041
     Dates: start: 19960811
  8. CIPROBAY [Suspect]
     Active Substance: CIPROFLOXACIN
     Dosage: UNK
     Route: 041
     Dates: start: 19960817, end: 19960817
  9. DIFLUCAN [Suspect]
     Active Substance: FLUCONAZOLE
     Route: 048
     Dates: start: 19960730, end: 19960816
  10. ANCOTIL [Suspect]
     Active Substance: FLUCYTOSINE
     Dosage: UNK
     Route: 041
     Dates: start: 19960815
  11. AMPHOTERICIN B. [Suspect]
     Active Substance: AMPHOTERICIN B
     Dosage: UNK
     Route: 041
     Dates: start: 19960816
  12. OPIUM [Suspect]
     Active Substance: OPIUM
     Dosage: UNK
     Route: 048
     Dates: start: 19960807, end: 19960818
  13. SOLU-DECORTIN-H [Suspect]
     Active Substance: PREDNISOLONE HEMISUCCINATE
     Dosage: UNK
     Route: 041
     Dates: start: 19960817, end: 19960817
  14. PRIMAXIN [Suspect]
     Active Substance: CILASTATIN SODIUM\IMIPENEM
     Route: 041
     Dates: start: 19960816, end: 19960816
  15. LEUCOMAX [Suspect]
     Active Substance: MOLGRAMOSTIM
     Route: 058
     Dates: start: 19960815
  16. DORMICUM [Suspect]
     Active Substance: MIDAZOLAM\MIDAZOLAM HYDROCHLORIDE
     Dosage: UNK
     Route: 041
     Dates: start: 19960818
  17. GENTAMICIN. [Suspect]
     Active Substance: GENTAMICIN
     Route: 041
     Dates: start: 19960805, end: 19960811
  18. PARACETAMOL [Suspect]
     Active Substance: ACETAMINOPHEN
     Dosage: UNK
     Route: 048
     Dates: start: 19960805, end: 19960811
  19. DOPAMIN [Suspect]
     Active Substance: DOPAMINE HYDROCHLORIDE
     Route: 041
     Dates: start: 19960817
  20. MORPHINE SULFATE. [Suspect]
     Active Substance: MORPHINE SULFATE
     Dosage: UNK
     Route: 041
     Dates: start: 19960808, end: 19960816
  21. TAVEGIL [Suspect]
     Active Substance: CLEMASTINE FUMARATE
     Dosage: UNK
     Route: 041
     Dates: start: 19960816
  22. ZOFRAN [Suspect]
     Active Substance: ONDANSETRON HYDROCHLORIDE
     Dosage: UNK
     Route: 041
     Dates: start: 19960730, end: 19960809
  23. METHOTREXATE [Suspect]
     Active Substance: METHOTREXATE
     Dosage: UNK
     Route: 042
     Dates: start: 19960802
  24. ALLOPURINOL. [Suspect]
     Active Substance: ALLOPURINOL
     Dosage: UNK
     Route: 048
     Dates: start: 19960729, end: 19960812
  25. DIPIDOLOR [Suspect]
     Active Substance: PIRITRAMIDE
     Dosage: UNK
     Route: 041
     Dates: start: 19960816
  26. ISOPTIN [Suspect]
     Active Substance: VERAPAMIL HYDROCHLORIDE
     Route: 041
     Dates: start: 19960817, end: 19960817
  27. METRONIDAZOLE. [Suspect]
     Active Substance: METRONIDAZOLE
     Dosage: UNK
     Route: 041
     Dates: start: 19960805, end: 19960809
  28. ZIENAM [Suspect]
     Active Substance: CILASTATIN SODIUM\IMIPENEM
     Route: 041
     Dates: start: 19960816, end: 19960816
  29. IMODIUM [Suspect]
     Active Substance: LOPERAMIDE HYDROCHLORIDE
     Dosage: UNK
     Route: 048
     Dates: start: 19960731, end: 19960816
  30. LASIX [Suspect]
     Active Substance: FUROSEMIDE
     Route: 048
     Dates: start: 19960814, end: 19960814
  31. PASSPERTIN [Suspect]
     Active Substance: METOCLOPRAMIDE HYDROCHLORIDE
     Dosage: UNK
     Route: 041
     Dates: start: 19960804
  32. HUMAN ACTRAPID [Suspect]
     Active Substance: INSULIN HUMAN
     Dosage: UNK
     Route: 058
     Dates: start: 19960816
  33. MERONEM [Suspect]
     Active Substance: MEROPENEM
     Route: 042
     Dates: start: 19960816
  34. AMOXICILLIN AND CLAVULANATE POTASSIUM [Suspect]
     Active Substance: AMOXICILLIN\CLAVULANATE POTASSIUM
     Dosage: UNK
     Route: 041
     Dates: start: 19960807, end: 19960811
  35. LIQUEMIN [Suspect]
     Active Substance: HEPARIN SODIUM
     Route: 058
     Dates: start: 19960806
  36. PSYQUIL [Suspect]
     Active Substance: TRIFLUPROMAZINE HYDROCHLORIDE
     Dosage: UNK
     Route: 041
     Dates: start: 19960816
  37. ANTRA [Suspect]
     Active Substance: OMEPRAZOLE
     Route: 041
     Dates: start: 19960730
  38. DEMEROL [Suspect]
     Active Substance: MEPERIDINE HYDROCHLORIDE
     Route: 065
  39. SUPRARENIN [Suspect]
     Active Substance: EPINEPHRINE
     Route: 041
     Dates: start: 19960817
  40. NEUPOGEN [Suspect]
     Active Substance: FILGRASTIM
     Indication: NEUTROPENIA
     Dosage: UNK
     Route: 065
     Dates: start: 19960816, end: 19960817
  41. BIFITERAL [Suspect]
     Active Substance: LACTULOSE
     Dosage: UNK
     Route: 048
     Dates: start: 19960813, end: 19960813
  42. HUMANALBUMIN [Suspect]
     Active Substance: ALBUMIN (HUMAN)
     Dosage: UNK
     Route: 041
     Dates: start: 19960816, end: 19960817
  43. NOVALGIN [Suspect]
     Active Substance: METAMIZOLE SODIUM
     Dosage: UNK
     Route: 041
     Dates: start: 19960811, end: 19960819
  44. VITALIPID [Suspect]
     Active Substance: ERGOCALCIFEROL\PHYTONADIONE\RETINOL\TOCOPHEROL
     Dosage: UNK
     Route: 041
     Dates: start: 19960809, end: 19960816

REACTIONS (14)
  - Stevens-Johnson syndrome [Fatal]
  - Toxic epidermal necrolysis [Fatal]
  - Blister [Fatal]
  - Pain [Unknown]
  - Pyrexia [Unknown]
  - Lip erosion [Fatal]
  - Hypertension [Unknown]
  - Epidermolysis [Fatal]
  - Rash [Fatal]
  - Pruritus [Unknown]
  - Hyperglycaemia [Unknown]
  - Shock [Fatal]
  - Circulatory collapse [Fatal]
  - Fungal infection [Unknown]

NARRATIVE: CASE EVENT DATE: 19960804
